FAERS Safety Report 9938160 (Version 1)
Quarter: 2014Q1

REPORT INFORMATION
  Report Type: Spontaneous
  Country: FR (occurrence: FR)
  Receive Date: 20140303
  Receipt Date: 20140303
  Transmission Date: 20141002
  Serious: Yes (Hospitalization)
  Sender: FDA-Public Use
  Company Number: FR-ROCHE-1354977

PATIENT
  Age: 83 Year
  Sex: Male
  Weight: 65.2 kg

DRUGS (1)
  1. ROCEPHINE [Suspect]
     Indication: BRONCHITIS
     Route: 042
     Dates: start: 20140203

REACTIONS (2)
  - Hepatocellular injury [Not Recovered/Not Resolved]
  - Transaminases increased [Not Recovered/Not Resolved]
